FAERS Safety Report 8484292-8 (Version None)
Quarter: 2012Q3

REPORT INFORMATION
  Report Type: 
  Country: None (occurrence: None)
  Receive Date: 20120703
  Receipt Date: 20120627
  Transmission Date: 20120928
  Serious: Yes (Hospitalization)
  Sender: FDA-Public Use
  Company Number: IT-SANOFI-AVENTIS-2012SA043631

PATIENT
  Age: 69 Year
  Sex: Male

DRUGS (1)
  1. CABAZITAXEL [Suspect]
     Dosage: DOSE 25 MG/M2 BODY SURFACE
     Route: 042
     Dates: start: 20120503

REACTIONS (3)
  - THROMBOCYTOPENIA [None]
  - DISSEMINATED INTRAVASCULAR COAGULATION [None]
  - EPISTAXIS [None]
